FAERS Safety Report 7088007-X (Version None)
Quarter: 2010Q4

REPORT INFORMATION
  Report Type: 
  Country: None (occurrence: None)
  Receive Date: 20101001
  Receipt Date: 20100910
  Transmission Date: 20110411
  Serious: No
  Sender: FDA-Public Use
  Company Number: 2010-00800

PATIENT
  Age: 54 Year
  Sex: Male
  Weight: 74.8435 kg

DRUGS (2)
  1. ZICAM COLD REMEDY NASAL GEL [Suspect]
     Indication: NASOPHARYNGITIS
     Dosage: QID, ^ABOUT A WEEK^ 2008 OR 2009
     Dates: end: 20090101
  2. ZICAM COLD REMEDY GEL SWABS [Suspect]
     Indication: NASOPHARYNGITIS
     Dosage: QID, ^ABOUT A WEEK^ 2008 OR 2009
     Dates: end: 20090101

REACTIONS (2)
  - ANOSMIA [None]
  - HYPOGEUSIA [None]
